FAERS Safety Report 7725228-4 (Version None)
Quarter: 2011Q3

REPORT INFORMATION
  Report Type: 
  Country: None (occurrence: None)
  Receive Date: 20110902
  Receipt Date: 20110822
  Transmission Date: 20111222
  Serious: Yes (Other)
  Sender: FDA-Public Use
  Company Number: NO-BRISTOL-MYERS SQUIBB COMPANY-16016941

PATIENT
  Age: 22 Year
  Sex: Male

DRUGS (3)
  1. ZYPREXA [Suspect]
  2. VALLERGAN [Suspect]
  3. ABILIFY [Suspect]

REACTIONS (1)
  - PULMONARY EMBOLISM [None]
